FAERS Safety Report 6101000-6 (Version None)
Quarter: 2009Q1

REPORT INFORMATION
  Report Type: 
  Country: None (occurrence: None)
  Receive Date: 20090220
  Receipt Date: 20090205
  Transmission Date: 20090719
  Serious: Yes (Hospitalization)
  Sender: FDA-Public Use
  Company Number: B0557746A

PATIENT
  Age: 9 Year
  Sex: Male

DRUGS (4)
  1. LAMOTRIGINE [Suspect]
  2. VALPROIC ACID [Suspect]
  3. CLOBAZAM (FORMULATION UNKNOWN) (GENERIC) (CLOBAZAM) [Suspect]
  4. ETHOSUXIMIDE [Suspect]

REACTIONS (11)
  - ANGIOEDEMA [None]
  - BLISTER [None]
  - COMA [None]
  - CONVULSION [None]
  - DRUG INTERACTION [None]
  - DRUG TOXICITY [None]
  - LOWER RESPIRATORY TRACT INFECTION [None]
  - NECROSIS [None]
  - PNEUMONIA [None]
  - SWEAT GLAND DISORDER [None]
  - URTICARIA [None]
